FAERS Safety Report 7701065-1 (Version None)
Quarter: 2011Q3

REPORT INFORMATION
  Report Type: 
  Country: None (occurrence: None)
  Receive Date: 20110822
  Receipt Date: 20110808
  Transmission Date: 20111222
  Serious: Yes (Hospitalization)
  Sender: FDA-Public Use
  Company Number: CA-UCBSA-038826

PATIENT
  Age: 17 Year
  Sex: Female

DRUGS (2)
  1. ALESSE [Suspect]
     Dosage: 28 TABLETS
     Route: 048
  2. KEPPRA [Suspect]
     Route: 048

REACTIONS (2)
  - CONVULSION [None]
  - CONDITION AGGRAVATED [None]
